FAERS Safety Report 21920542 (Version 1)
Quarter: 2023Q1

REPORT INFORMATION
  Report Type: Spontaneous
  Country: US (occurrence: US)
  Receive Date: 20230127
  Receipt Date: 20230127
  Transmission Date: 20230418
  Serious: No
  Sender: FDA-Public Use
  Company Number: US-MYLANLABS-2022M1133434

PATIENT
  Age: 20 Year
  Sex: Female

DRUGS (1)
  1. CYSTAGON [Suspect]
     Active Substance: CYSTEAMINE BITARTRATE
     Indication: Cystinosis
     Dosage: 400 MILLIGRAM, QID
     Route: 048
     Dates: start: 20020116

REACTIONS (4)
  - Tachycardia [Unknown]
  - Blood homocysteine abnormal [Unknown]
  - Insomnia [Unknown]
  - Paraesthesia [Unknown]
